FAERS Safety Report 8252456-4 (Version None)
Quarter: 2012Q2

REPORT INFORMATION
  Report Type: 
  Country: None (occurrence: None)
  Receive Date: 20120402
  Receipt Date: 20111215
  Transmission Date: 20120825
  Serious: No
  Sender: FDA-Public Use
  Company Number: US-ABBOTT-11P-163-0840630-00

PATIENT
  Sex: Male
  Weight: 90.8 kg

DRUGS (4)
  1. ANDROGEL [Suspect]
     Dosage: TWO PUMPS
     Route: 062
     Dates: start: 20110501, end: 20110712
  2. ANDROGEL [Suspect]
     Indication: BLOOD TESTOSTERONE DECREASED
     Dosage: FOUR PUMPS
     Route: 062
     Dates: start: 20090101, end: 20110501
  3. ANDROGEL [Suspect]
     Dosage: THREE PUMPS
     Dates: start: 20111201
  4. ANDROGEL [Suspect]
     Dosage: FOUR PUMPS
     Route: 062
     Dates: start: 20110713

REACTIONS (6)
  - SINUSITIS [None]
  - ALOPECIA [None]
  - FEELING JITTERY [None]
  - LIBIDO INCREASED [None]
  - FEELING COLD [None]
  - BLOOD TESTOSTERONE INCREASED [None]
